FAERS Safety Report 25597566 (Version 1)
Quarter: 2025Q3

REPORT INFORMATION
  Report Type: Spontaneous
  Country: US (occurrence: None)
  Receive Date: 20250723
  Receipt Date: 20250723
  Transmission Date: 20251021
  Serious: Yes (Hospitalization)
  Sender: FDA-CTU
  Company Number: None

PATIENT
  Age: 67 Year
  Sex: Male

DRUGS (22)
  1. TACROLIMUS [Suspect]
     Active Substance: TACROLIMUS
     Indication: Renal transplant
     Dosage: 2.5 MG DAILY ORAL
     Route: 048
     Dates: start: 20250528
  2. ALBUTEROL HFA INH (200 PUFFS) 8.5GM [Concomitant]
  3. ALDACTONE 25MG TABLETS [Concomitant]
  4. ATORVASTATIN [Concomitant]
     Active Substance: ATORVASTATIN
  5. BUMETANIDE 0.5MG TABLETS [Concomitant]
  6. CETIRIZINE [Concomitant]
     Active Substance: CETIRIZINE HYDROCHLORIDE
  7. VITAMIN D3 50,000 IU (CHOLE) CAP [Concomitant]
  8. COZAAR 100MG TABLETS [Concomitant]
  9. EZETIMIBE [Concomitant]
     Active Substance: EZETIMIBE
  10. FERROUS SULFATE 325MG (5GR) TABS [Concomitant]
  11. HUMULIN R U-500 (CONCEN) VL 20ML [Concomitant]
  12. HYDRALAZINE [Concomitant]
     Active Substance: HYDRALAZINE HYDROCHLORIDE
  13. METOPROLOL SUCCINATE [Concomitant]
     Active Substance: METOPROLOL SUCCINATE
  14. MONTELUKAST SODIUM [Concomitant]
     Active Substance: MONTELUKAST SODIUM
  15. MOUNJARO 7.5MG/0.5ML INJ (4 PENS) [Concomitant]
  16. MYFORTIC 360MG DELAYED RELEASE TABS [Concomitant]
  17. PANTOPRAZOLE 20MG TABLETS [Concomitant]
  18. PREDNISONE [Concomitant]
     Active Substance: PREDNISONE
  19. RIVAROXABAN 2.5MG TABLETS [Concomitant]
  20. SERTRALINE [Concomitant]
     Active Substance: SERTRALINE HYDROCHLORIDE
  21. TAMSULOSIN [Concomitant]
     Active Substance: TAMSULOSIN
  22. TESTOSTERONE 1% GEL(25MG)30X2.5GM [Concomitant]

REACTIONS (1)
  - Tumour excision [None]

NARRATIVE: CASE EVENT DATE: 20250721
